FAERS Safety Report 5769367-6 (Version None)
Quarter: 2008Q2

REPORT INFORMATION
  Report Type: 
  Country: None (occurrence: None)
  Receive Date: 20080612
  Receipt Date: 20080328
  Transmission Date: 20081010
  Serious: No
  Sender: FDA-Public Use
  Company Number: US-ABBOTT-08P-163-0444323-00

PATIENT
  Sex: Male
  Weight: 108.96 kg

DRUGS (3)
  1. HUMIRA [Suspect]
     Indication: PSORIATIC ARTHROPATHY
     Route: 058
     Dates: start: 20071201, end: 20080201
  2. HUMIRA [Suspect]
     Dates: start: 20080301
  3. ALEVE [Concomitant]
     Indication: HEADACHE

REACTIONS (1)
  - DRUG INEFFECTIVE [None]
